FAERS Safety Report 23791555 (Version 2)
Quarter: 2024Q3

REPORT INFORMATION
  Report Type: Spontaneous
  Country: US (occurrence: US)
  Receive Date: 20240429
  Receipt Date: 20240729
  Transmission Date: 20241017
  Serious: Yes (Other)
  Sender: BRISTOL MYERS SQUIBB
  Company Number: US-BRISTOL-MYERS SQUIBB COMPANY-2024-062786

PATIENT
  Age: 60 Year
  Sex: Male
  Weight: 72.8 kg

DRUGS (1)
  1. NULOJIX [Suspect]
     Active Substance: BELATACEPT
     Indication: Renal transplant
     Dosage: DOSE : 364 MG;     FREQ : 364 MG EVERY 28 DAYS?STRENGTH  2X 250 MG VIALS
     Dates: end: 20240419

REACTIONS (3)
  - Dementia [Unknown]
  - Dizziness [Unknown]
  - Fall [Unknown]
